FAERS Safety Report 7540400-4 (Version None)
Quarter: 2011Q2

REPORT INFORMATION
  Report Type: 
  Country: None (occurrence: None)
  Receive Date: 20110610
  Receipt Date: 20110601
  Transmission Date: 20111010
  Serious: Yes (Hospitalization, Disabling, Other)
  Sender: FDA-Public Use
  Company Number: BE-ELI_LILLY_AND_COMPANY-BE201102003754

PATIENT
  Sex: Male
  Weight: 76 kg

DRUGS (2)
  1. OMEPRAZOLE [Concomitant]
     Indication: OESOPHAGITIS
     Dosage: 20 MG, DAILY (1/D)
     Route: 048
     Dates: start: 20070101
  2. CIALIS [Suspect]
     Indication: ERECTILE DYSFUNCTION
     Dosage: 20 MG, PRN
     Route: 048
     Dates: start: 20090326, end: 20110118

REACTIONS (6)
  - CEREBROVASCULAR ACCIDENT [None]
  - ARTERY DISSECTION [None]
  - EMBOLISM VENOUS [None]
  - PARAESTHESIA ORAL [None]
  - HEMIANOPIA [None]
  - HEMIPLEGIA [None]
